FAERS Safety Report 7815518-9 (Version None)
Quarter: 2011Q4

REPORT INFORMATION
  Report Type: 
  Country: None (occurrence: None)
  Receive Date: 20111014
  Receipt Date: 20110926
  Transmission Date: 20120403
  Serious: Yes (Death, Hospitalization)
  Sender: FDA-Public Use
  Company Number: JP-BAYER-201015418BYL

PATIENT
  Age: 74 Year
  Sex: Male
  Weight: 40 kg

DRUGS (11)
  1. NEXAVAR [Suspect]
     Dosage: 400 MG
     Route: 048
     Dates: start: 20110701, end: 20110705
  2. CAMOSTATE [Concomitant]
     Indication: BLOOD AMYLASE ABNORMAL
     Dosage: DAILY DOSE 300 MG
     Route: 048
     Dates: start: 20101006, end: 20110621
  3. NEXAVAR [Suspect]
     Indication: HEPATIC NEOPLASM MALIGNANT
     Dosage: 200 MG BID
     Route: 048
     Dates: start: 20101006, end: 20101013
  4. LACTULOSE [Concomitant]
     Indication: DIARRHOEA
     Dosage: UNK
     Route: 048
     Dates: start: 20090119, end: 20110420
  5. NORVASC [Concomitant]
     Dosage: DAILY DOSE 2.5 MG
     Route: 048
     Dates: start: 20101006, end: 20110621
  6. LOPERAMIDE HCL [Concomitant]
     Dosage: UNK
     Route: 048
     Dates: start: 20091201, end: 20110705
  7. RABEPRAZOLE SODIUM [Concomitant]
     Dosage: DAILY DOSE 10 MG
     Route: 048
     Dates: start: 20110120, end: 20110705
  8. LENDORMIN DAINIPPO [Concomitant]
     Dosage: DAILY DOSE .25 MG
     Route: 048
     Dates: start: 20090119, end: 20110705
  9. MAGNESIUM OXIDE [Concomitant]
     Indication: DIARRHOEA
     Dosage: DAILY DOSE 1 G
     Route: 048
     Dates: start: 20090119, end: 20110313
  10. NEXAVAR [Suspect]
     Dosage: 400 MG, BID
     Route: 048
     Dates: start: 20101014, end: 20110621
  11. LANSOPRAZOLE [Concomitant]
     Dosage: DAILY DOSE 15 MG
     Route: 048
     Dates: start: 20090119, end: 20110119

REACTIONS (8)
  - DECREASED APPETITE [None]
  - ABDOMINAL PAIN [None]
  - PALMAR-PLANTAR ERYTHRODYSAESTHESIA SYNDROME [None]
  - DIARRHOEA [None]
  - ASPARTATE AMINOTRANSFERASE INCREASED [None]
  - HEPATIC NEOPLASM MALIGNANT [None]
  - PLATELET COUNT DECREASED [None]
  - HEPATIC FAILURE [None]
